FAERS Safety Report 7213792-3 (Version None)
Quarter: 2011Q1

REPORT INFORMATION
  Report Type: 
  Country: None (occurrence: None)
  Receive Date: 20110106
  Receipt Date: 20101228
  Transmission Date: 20110831
  Serious: Yes (Other)
  Sender: FDA-Public Use
  Company Number: US-ELI_LILLY_AND_COMPANY-US201101000464

PATIENT
  Sex: Female

DRUGS (8)
  1. HUMALOG [Suspect]
     Dosage: 12 U, OTHER
  2. HUMALOG [Suspect]
     Dosage: 8 U, OTHER
  3. LEVEMIR [Concomitant]
  4. HUMALOG [Suspect]
     Dosage: 8 U, OTHER
  5. HUMALOG [Suspect]
     Dosage: 14 U, EACH MORNING
  6. LANTUS [Concomitant]
  7. HUMALOG [Suspect]
     Dosage: 12 U, OTHER
  8. HUMALOG [Suspect]
     Indication: DIABETES MELLITUS
     Dosage: 14 U, EACH MORNING

REACTIONS (12)
  - INTERVERTEBRAL DISC DEGENERATION [None]
  - VISUAL IMPAIRMENT [None]
  - NEUROPATHY PERIPHERAL [None]
  - NASOPHARYNGEAL SURGERY [None]
  - MUSCULAR WEAKNESS [None]
  - EYE HAEMORRHAGE [None]
  - ARTHRITIS [None]
  - JOINT RANGE OF MOTION DECREASED [None]
  - OEDEMA PERIPHERAL [None]
  - FEELING ABNORMAL [None]
  - MUSCULOSKELETAL STIFFNESS [None]
  - DRUG DOSE OMISSION [None]
